FAERS Safety Report 9264206 (Version 1)
Quarter: 2013Q2

REPORT INFORMATION
  Report Type: Spontaneous
  Country: AR (occurrence: AR)
  Receive Date: 20130430
  Receipt Date: 20130430
  Transmission Date: 20140414
  Serious: Yes (Hospitalization, Other)
  Sender: FDA-Public Use
  Company Number: AR-ABBOTT-13P-007-1081074-00

PATIENT
  Age: 55 Year
  Sex: Male

DRUGS (1)
  1. HUMIRA [Suspect]
     Indication: CROHN^S DISEASE
     Route: 058
     Dates: start: 20121003, end: 20130409

REACTIONS (6)
  - Convulsion [Unknown]
  - Pneumonia [Unknown]
  - Anaemia [Unknown]
  - Anaemia [Unknown]
  - Decreased appetite [Unknown]
  - Weight decreased [Unknown]
